FAERS Safety Report 15277043 (Version 4)
Quarter: 2019Q3

REPORT INFORMATION
  Report Type: Spontaneous
  Country: US (occurrence: US)
  Receive Date: 20180814
  Receipt Date: 20190806
  Transmission Date: 20191004
  Serious: Yes (Other)
  Sender: FDA-Public Use
  Company Number: US-SA-2018SA183611

PATIENT
  Age: 64 Year
  Sex: Male

DRUGS (1)
  1. AUBAGIO [Suspect]
     Active Substance: TERIFLUNOMIDE
     Indication: MULTIPLE SCLEROSIS
     Dosage: 14 MG, QD
     Route: 048
     Dates: start: 20171220

REACTIONS (24)
  - Temperature intolerance [Unknown]
  - Fall [Unknown]
  - Unevaluable event [Unknown]
  - Suicidal ideation [Unknown]
  - Muscle rupture [Unknown]
  - Retinal haemorrhage [Unknown]
  - Depression [Not Recovered/Not Resolved]
  - Visual impairment [Unknown]
  - Inguinal hernia [Unknown]
  - Retinal artery occlusion [Unknown]
  - Anger [Unknown]
  - Blindness unilateral [Unknown]
  - Road traffic accident [Unknown]
  - Hypoglycaemia [Unknown]
  - Peroneal nerve palsy [Unknown]
  - Narcolepsy [Not Recovered/Not Resolved]
  - Hypomania [Unknown]
  - Hepatic enzyme increased [Unknown]
  - Pain [Unknown]
  - Tremor [Unknown]
  - Head injury [Unknown]
  - Back pain [Unknown]
  - Hypoaesthesia [Unknown]
  - Arteriosclerosis [Unknown]

NARRATIVE: CASE EVENT DATE: 2018
